FAERS Safety Report 7290149-0 (Version None)
Quarter: 2011Q1

REPORT INFORMATION
  Report Type: 
  Country: None (occurrence: None)
  Receive Date: 20110214
  Receipt Date: 20110204
  Transmission Date: 20110831
  Serious: Yes (Hospitalization)
  Sender: FDA-Public Use
  Company Number: IN-BRISTOL-MYERS SQUIBB COMPANY-14196091

PATIENT
  Age: 31 Year
  Sex: Female

DRUGS (6)
  1. ABATACEPT [Suspect]
     Indication: SYSTEMIC LUPUS ERYTHEMATOSUS
     Route: 042
     Dates: start: 20071004, end: 20080515
  2. ACTONEL [Concomitant]
     Dates: start: 20080523
  3. MYCOPHENOLATE MOFETIL [Suspect]
     Indication: SYSTEMIC LUPUS ERYTHEMATOSUS
     Dosage: INTERRUPTED ON 17-MAY-2008
     Route: 048
     Dates: start: 20080405, end: 20080517
  4. PREDNISOLONE [Concomitant]
     Dates: start: 20080222
  5. BECOSULES [Concomitant]
     Dates: start: 20080523
  6. FUROSEMIDE [Concomitant]
     Dates: start: 20080523

REACTIONS (1)
  - GASTROENTERITIS [None]
